FAERS Safety Report 7075143-7 (Version None)
Quarter: 2010Q4

REPORT INFORMATION
  Report Type: 
  Country: None (occurrence: None)
  Receive Date: 20101029
  Receipt Date: 20100514
  Transmission Date: 20110411
  Serious: No
  Sender: FDA-Public Use
  Company Number: US-WYE-H15291910

PATIENT
  Age: 42 Year
  Sex: Male
  Weight: 88.53 kg

DRUGS (1)
  1. ADVIL PM [Suspect]
     Indication: INSOMNIA
     Dosage: 1.5 CAPLETS DAILY
     Route: 048
     Dates: start: 20090101, end: 20100513

REACTIONS (1)
  - HAEMATOCHEZIA [None]
